FAERS Safety Report 9058785 (Version 1)
Quarter: 2013Q1

REPORT INFORMATION
  Report Type: Spontaneous
  Country: JP (occurrence: JP)
  Receive Date: 20130204
  Receipt Date: 20130204
  Transmission Date: 20140127
  Serious: Yes (Hospitalization)
  Sender: FDA-Public Use
  Company Number: JP-BRISTOL-MYERS SQUIBB COMPANY-17329459

PATIENT
  Sex: 0

DRUGS (1)
  1. BARACLUDE TABS 0.5 MG [Suspect]
     Route: 048

REACTIONS (1)
  - Pancytopenia [Unknown]
